FAERS Safety Report 4933460-8 (Version None)
Quarter: 2006Q1

REPORT INFORMATION
  Report Type: 
  Country: None (occurrence: None)
  Receive Date: 20060306
  Receipt Date: 20060223
  Transmission Date: 20060701
  Serious: Yes (Death, Other)
  Sender: FDA-Public Use
  Company Number: PHBS2006US03131

PATIENT
  Age: 46 Year
  Sex: Female

DRUGS (4)
  1. STEROIDS NOS [Concomitant]
  2. CYTOXAN [Concomitant]
  3. BUSULFAN [Concomitant]
  4. CYCLOSPORINE [Suspect]
     Indication: BONE MARROW TRANSPLANT
     Route: 065

REACTIONS (6)
  - CONVULSION [None]
  - DEATH [None]
  - GRAFT VERSUS HOST DISEASE [None]
  - HYPERTENSION [None]
  - NEUROTOXICITY [None]
  - THROMBOTIC MICROANGIOPATHY [None]
